FAERS Safety Report 25504937 (Version 3)
Quarter: 2025Q3

REPORT INFORMATION
  Report Type: Spontaneous
  Country: EU (occurrence: EU)
  Receive Date: 20250702
  Receipt Date: 20250821
  Transmission Date: 20251020
  Serious: Yes (Life-Threatening, Hospitalization, Other)
  Sender: BRISTOL-MYERS SQUIBB COMPANY
  Company Number: EU-BRISTOL-MYERS SQUIBB COMPANY-2025-093459

PATIENT
  Age: 71 Year
  Sex: Female
  Weight: 70 kg

DRUGS (34)
  1. LENALIDOMIDE [Suspect]
     Active Substance: LENALIDOMIDE
     Indication: Plasma cell myeloma
     Route: 048
     Dates: start: 20190513, end: 20250605
  2. DEXAMETHASONE [Suspect]
     Active Substance: DEXAMETHASONE
     Indication: Thrombocytopenia
     Route: 048
     Dates: start: 20250610, end: 20250618
  3. DEXAMETHASONE [Suspect]
     Active Substance: DEXAMETHASONE
     Indication: Plasma cell myeloma
     Dosage: MED. KIT NO: 42179, MOST RECENT DOSE: 06-JUN-2025
     Route: 048
     Dates: start: 20190513, end: 20250606
  4. BORTEZOMIB [Suspect]
     Active Substance: BORTEZOMIB
     Indication: Plasma cell myeloma
     Dosage: MOST RECENT DOSE ADMINISTERED ON 25-OCT-2019, MED.KIT NO: 51645-07
     Route: 058
     Dates: start: 20190513, end: 20191025
  5. TOLODODEKIN ALFA [Suspect]
     Active Substance: TOLODODEKIN ALFA
     Indication: Plasma cell myeloma
     Dosage: MOST RECENT DOSE ADMINISTERED ON 28-MAY-2025 MED. KIT NO: 26627
     Route: 058
     Dates: start: 20190513, end: 20250528
  6. CALCIUM CARBONATE [Concomitant]
     Active Substance: CALCIUM CARBONATE
     Indication: Prophylaxis
     Dates: start: 2025
  7. VITAMIN D3 [Concomitant]
     Active Substance: CHOLECALCIFEROL
     Indication: Vitamin D deficiency
     Dosage: 4000 UNIT
     Route: 048
     Dates: start: 2025
  8. GLICLAZIDE [Concomitant]
     Active Substance: GLICLAZIDE
     Indication: Hyperglycaemia
     Route: 048
     Dates: start: 2025
  9. POTASSIUM CHLORIDE [Concomitant]
     Active Substance: POTASSIUM CHLORIDE
     Indication: Prophylaxis
     Route: 048
     Dates: start: 20250605
  10. PERINDOPRIL [Concomitant]
     Active Substance: PERINDOPRIL
     Indication: Hypertension
     Dosage: FREQ: NECESSARY
     Route: 048
     Dates: start: 2025
  11. INSULIN HUMAN [Concomitant]
     Active Substance: INSULIN HUMAN
     Indication: Hyperglycaemia
     Route: 058
     Dates: start: 2025
  12. RAMIPRIL [Concomitant]
     Active Substance: RAMIPRIL
     Indication: Hypertension
     Route: 048
     Dates: start: 2025, end: 2025
  13. URSODIOL [Concomitant]
     Active Substance: URSODIOL
     Indication: Hepatic steatosis
     Route: 048
     Dates: start: 2025, end: 2025
  14. DROTAVERINE HYDROCHLORIDE [Concomitant]
     Active Substance: DROTAVERINE HYDROCHLORIDE
     Indication: Hepatic steatosis
     Route: 042
     Dates: start: 2025, end: 2025
  15. HEPAREGEN [Concomitant]
     Indication: Hepatic steatosis
     Route: 048
     Dates: start: 2025
  16. BISOPROLOL [Concomitant]
     Active Substance: BISOPROLOL
     Indication: Hypertension
     Route: 048
     Dates: start: 2025
  17. OMEPRAZOLE [Concomitant]
     Active Substance: OMEPRAZOLE
     Indication: Gastritis prophylaxis
     Route: 048
     Dates: start: 2025
  18. OMEPRAZOLE [Concomitant]
     Active Substance: OMEPRAZOLE
     Route: 048
  19. PREDNISONE [Concomitant]
     Active Substance: PREDNISONE
     Indication: Thrombocytopenia
     Route: 048
     Dates: start: 20250618
  20. PREDNISONE [Concomitant]
     Active Substance: PREDNISONE
     Dosage: 10-5-0 MG
     Route: 048
     Dates: start: 20250613, end: 20250618
  21. ETHAMSYLATE [Concomitant]
     Active Substance: ETHAMSYLATE
     Indication: Thrombocytopenia
     Route: 048
     Dates: start: 20250613, end: 20250618
  22. CALCIUM CHLORATUM [CALCIUM CHLORIDE] [Concomitant]
     Indication: Prophylaxis
     Route: 042
     Dates: start: 20240709
  23. PREGABALIN [Concomitant]
     Active Substance: PREGABALIN
     Indication: Peripheral motor neuropathy
     Route: 048
     Dates: start: 20240718
  24. VIGALEX FORTE [Concomitant]
     Indication: Hypocalcaemia
     Route: 048
     Dates: start: 202405
  25. LACTOFERRIN [Concomitant]
     Active Substance: LACTOFERRIN
     Indication: Irritable bowel syndrome
     Route: 048
     Dates: start: 20210908
  26. DEBUTIR [Concomitant]
     Indication: Irritable bowel syndrome
     Route: 048
     Dates: start: 20210908
  27. MILGAMMA [BENFOTIAMINE;PYRIDOXINE HYDROCHLORIDE] [Concomitant]
     Indication: Prophylaxis
     Dosage: 100/100 MG
     Route: 048
     Dates: start: 20210817
  28. .ALPHA.-LIPOIC ACID [Concomitant]
     Active Substance: .ALPHA.-LIPOIC ACID
     Indication: Peripheral motor neuropathy
     Route: 048
     Dates: start: 20190912
  29. ATOSSA [ONDANSETRON] [Concomitant]
     Indication: Nausea
     Route: 048
     Dates: start: 20190630
  30. ESSENTIAL FORTE N [Concomitant]
     Indication: Liver injury
     Route: 048
     Dates: start: 20190621
  31. TRAZODONE [Concomitant]
     Active Substance: TRAZODONE HYDROCHLORIDE
     Indication: Depression
     Route: 048
     Dates: start: 20190603
  32. INDAPAMIDE [Concomitant]
     Active Substance: INDAPAMIDE
     Indication: Hypertension
     Route: 048
     Dates: start: 200510
  33. BETANOLOL [Concomitant]
     Indication: Hypertension
     Route: 048
     Dates: start: 200510
  34. VALSARTAN [Concomitant]
     Active Substance: VALSARTAN
     Indication: Hypertension
     Route: 048
     Dates: start: 200510

REACTIONS (1)
  - Acute myocardial infarction [Recovered/Resolved]

NARRATIVE: CASE EVENT DATE: 20250617
